FAERS Safety Report 8917202 (Version 1)
Quarter: 2012Q4

REPORT INFORMATION
  Report Type: 
  Country: GB (occurrence: GB)
  Receive Date: 20121120
  Receipt Date: 20121120
  Transmission Date: 20130627
  Serious: Yes (Other)
  Sender: FDA-Public Use
  Company Number: PHFR2012GB005955

PATIENT
  Sex: Male

DRUGS (2)
  1. EVEROLIMUS [Suspect]
     Indication: METASTATIC RENAL CELL CARCINOMA
     Dosage: UNK UKN, UNK
     Dates: start: 201105
  2. EVEROLIMUS [Suspect]
     Dosage: 5 mg, UNK
     Route: 048

REACTIONS (4)
  - Toxicity to various agents [Unknown]
  - Chest discomfort [Unknown]
  - Neoplasm progression [Unknown]
  - Malignant neoplasm progression [Unknown]
